FAERS Safety Report 17140209 (Version 1)
Quarter: 2019Q4

REPORT INFORMATION
  Report Type: Report from Study
  Country: BR (occurrence: BR)
  Receive Date: 20191211
  Receipt Date: 20191211
  Transmission Date: 20200122
  Serious: Yes (Disabling)
  Sender: FDA-Public Use
  Company Number: NVSC2019BR062104

PATIENT
  Sex: Female

DRUGS (3)
  1. EXELON [Suspect]
     Active Substance: RIVASTIGMINE TARTRATE
     Indication: IMPULSIVE BEHAVIOUR
     Route: 065
  2. EXELON [Suspect]
     Active Substance: RIVASTIGMINE TARTRATE
     Indication: RESTLESSNESS
  3. EXELON [Suspect]
     Active Substance: RIVASTIGMINE TARTRATE
     Indication: ANXIETY

REACTIONS (2)
  - Mobility decreased [Unknown]
  - Product use in unapproved indication [Unknown]
